FAERS Safety Report 7597198-3 (Version None)
Quarter: 2011Q3

REPORT INFORMATION
  Report Type: 
  Country: None (occurrence: None)
  Receive Date: 20110708
  Receipt Date: 20100817
  Transmission Date: 20111222
  Serious: No
  Sender: FDA-Public Use
  Company Number: US-GLAXOSMITHKLINE-A0877500A

PATIENT
  Age: 55 Year
  Sex: Female

DRUGS (2)
  1. FLOVENT [Suspect]
     Indication: PRODUCT USED FOR UNKNOWN INDICATION
     Dosage: 220MCG UNKNOWN
     Route: 055
     Dates: start: 20030623
  2. SEREVENT [Suspect]
     Indication: PRODUCT USED FOR UNKNOWN INDICATION
     Dosage: 50MCG UNKNOWN
     Route: 055
     Dates: start: 20030623

REACTIONS (3)
  - FEELING ABNORMAL [None]
  - DRUG ADMINISTRATION ERROR [None]
  - ROAD TRAFFIC ACCIDENT [None]
